FAERS Safety Report 15523626 (Version 1)
Quarter: 2018Q4

REPORT INFORMATION
  Report Type: Spontaneous
  Country: FR (occurrence: FR)
  Receive Date: 20181018
  Receipt Date: 20181018
  Transmission Date: 20190205
  Serious: Yes (Hospitalization, Other)
  Sender: FDA-Public Use
  Company Number: FR-TEVA-2018-FR-965596

PATIENT
  Age: 62 Year
  Sex: Female

DRUGS (7)
  1. SERESTA 50 MG, COMPRIM? S?CABLE [Concomitant]
     Active Substance: OXAZEPAM
     Dosage: 1 DOSAGE FORMS DAILY; SCORED
     Route: 048
  2. FLUOXETINE (CHLORHYDRATE DE) [Suspect]
     Active Substance: FLUOXETINE HYDROCHLORIDE
     Indication: DEPRESSION
     Dosage: 1 DOSAGE FORMS DAILY;
     Route: 048
     Dates: start: 20171220
  3. MIRTAZAPINE. [Concomitant]
     Active Substance: MIRTAZAPINE
     Dosage: 15 MILLIGRAM DAILY;
     Route: 048
  4. IMOVANE [Concomitant]
     Active Substance: ZOPICLONE
     Dosage: SCORED
     Route: 048
  5. STAGID 700 MG, COMPRIM? S?CABLE [Concomitant]
     Active Substance: METFORMIN PAMOATE
     Dosage: 2 DOSAGE FORMS DAILY; SCORED
     Route: 048
  6. HALDOL DECANOAS, SOLUTION INJECTABLE [Interacting]
     Active Substance: HALOPERIDOL DECANOATE
     Indication: SCHIZOPHRENIA
     Route: 030
     Dates: start: 201708, end: 20180110
  7. CLOZAPINE MYLAN 100 MG, COMPRIM? S?CABLE [Suspect]
     Active Substance: CLOZAPINE
     Indication: SCHIZOPHRENIA
     Dosage: 3 DOSAGE FORMS DAILY; SCORED
     Route: 048
     Dates: start: 20180106, end: 20180110

REACTIONS (6)
  - Disturbance in social behaviour [Recovered/Resolved]
  - Drug interaction [Unknown]
  - Mutism [Recovered/Resolved]
  - Vomiting [Recovered/Resolved]
  - Musculoskeletal stiffness [Recovered/Resolved]
  - Seizure [Recovered/Resolved]

NARRATIVE: CASE EVENT DATE: 20180110
